FAERS Safety Report 11632959 (Version 1)
Quarter: 2015Q4

REPORT INFORMATION
  Report Type: Spontaneous
  Country: US (occurrence: None)
  Receive Date: 20151014
  Receipt Date: 20151014
  Transmission Date: 20160304
  Serious: Yes (Disabling)
  Sender: FDA-Public Use
  Company Number: None

PATIENT
  Age: 45 Year
  Sex: Female
  Weight: 83.92 kg

DRUGS (6)
  1. AMBIEN [Concomitant]
     Active Substance: ZOLPIDEM TARTRATE
  2. IBUPROFEN. [Concomitant]
     Active Substance: IBUPROFEN
  3. DEPAKOTE [Concomitant]
     Active Substance: DIVALPROEX SODIUM
  4. CITAPROLAM [Concomitant]
  5. ZONISAMIDE. [Suspect]
     Active Substance: ZONISAMIDE
     Indication: SEIZURE
     Dosage: 3 PILLS ?ONCE DAILY? TAKEN BY MOUTH
     Route: 048
     Dates: start: 20150319, end: 20150921
  6. TYLENOL [Concomitant]
     Active Substance: ACETAMINOPHEN

REACTIONS (4)
  - Vision blurred [None]
  - Headache [None]
  - Migraine [None]
  - Photophobia [None]
